FAERS Safety Report 5121345-6 (Version None)
Quarter: 2006Q4

REPORT INFORMATION
  Report Type: 
  Country: None (occurrence: None)
  Receive Date: 20061002
  Receipt Date: 20060913
  Transmission Date: 20070319
  Serious: Yes (Hospitalization)
  Sender: FDA-Public Use
  Company Number: US200608000175

PATIENT
  Age: 76 Year
  Sex: Female

DRUGS (15)
  1. FORTEO [Suspect]
     Indication: BONE DENSITY DECREASED
  2. FORTEO [Concomitant]
  3. FORTEO [Concomitant]
  4. CELEBREX [Concomitant]
  5. PREDNISONE TAB [Concomitant]
  6. ALPRAZOLAM [Concomitant]
  7. NEXIUM [Concomitant]
  8. ALBUTEROL [Concomitant]
  9. ATROVENT [Concomitant]
  10. XANAX /USA/ (ALPRAZOLAM) [Concomitant]
  11. CALCIUM W/VITAMIN D NOS (CALCIUM, VITAMIN D NOS) [Concomitant]
  12. REMERON [Concomitant]
  13. PROTONIX [Concomitant]
  14. MORPHINE SULFATE [Concomitant]
  15. MIRTAZAPINE [Concomitant]

REACTIONS (12)
  - ASTHENIA [None]
  - BACTERIAL INFECTION [None]
  - CARDIAC MURMUR [None]
  - CHRONIC OBSTRUCTIVE PULMONARY DISEASE [None]
  - CLUBBING [None]
  - DEEP VEIN THROMBOSIS [None]
  - EYE DISORDER [None]
  - HYPERGLYCAEMIA [None]
  - INSOMNIA [None]
  - NASAL CONGESTION [None]
  - ORAL INTAKE REDUCED [None]
  - PNEUMONIA BACTERIAL [None]
